FAERS Safety Report 4667706-0 (Version None)
Quarter: 2005Q2

REPORT INFORMATION
  Report Type: 
  Country: None (occurrence: None)
  Receive Date: 20050520
  Receipt Date: 20050224
  Transmission Date: 20051028
  Serious: Yes (Other)
  Sender: FDA-Public Use
  Company Number: PHNU2005DE01090

PATIENT
  Sex: Male

DRUGS (2)
  1. ZOMETA [Suspect]
     Dosage: 4 MG, QMO
     Dates: start: 20031120, end: 20050105
  2. AREDIA [Suspect]

REACTIONS (1)
  - OSTEONECROSIS [None]
